FAERS Safety Report 11264859 (Version 1)
Quarter: 2015Q3

REPORT INFORMATION
  Report Type: Spontaneous
  Country: US (occurrence: US)
  Receive Date: 20150713
  Receipt Date: 20150713
  Transmission Date: 20151125
  Serious: Yes (Other)
  Sender: FDA-Public Use
  Company Number: PHEH2014US023319

PATIENT
  Sex: Female

DRUGS (2)
  1. DIOVAN [Suspect]
     Active Substance: VALSARTAN
     Indication: PRODUCT USED FOR UNKNOWN INDICATION
     Dosage: 2 DF (TWO 80 MG TABLETS), QD
     Route: 065
  2. DIOVAN [Suspect]
     Active Substance: VALSARTAN
     Dosage: 3 DF (80 MG IN MORNING AND TWO 80 MG TABLETS), QD
     Route: 065

REACTIONS (3)
  - Blood pressure increased [Unknown]
  - Malaise [Unknown]
  - Drug ineffective [Unknown]
